FAERS Safety Report 25172549 (Version 1)
Quarter: 2025Q2

REPORT INFORMATION
  Report Type: Spontaneous
  Country: US (occurrence: US)
  Receive Date: 20250408
  Receipt Date: 20250408
  Transmission Date: 20250716
  Serious: No
  Sender: GLAXOSMITHKLINE
  Company Number: US-GSK-US2025033535

PATIENT
  Sex: Female

DRUGS (5)
  1. NUCALA [Suspect]
     Active Substance: MEPOLIZUMAB
     Indication: Bronchiectasis
  2. NUCALA [Suspect]
     Active Substance: MEPOLIZUMAB
     Indication: Mycobacterium avium complex infection
  3. NUCALA [Suspect]
     Active Substance: MEPOLIZUMAB
     Indication: Bronchopulmonary aspergillosis allergic
  4. NUCALA [Suspect]
     Active Substance: MEPOLIZUMAB
     Indication: Secretion discharge
  5. NUCALA [Suspect]
     Active Substance: MEPOLIZUMAB
     Indication: Hypereosinophilic syndrome

REACTIONS (1)
  - Product prescribing issue [Unknown]
